FAERS Safety Report 17253700 (Version 1)
Quarter: 2020Q1

REPORT INFORMATION
  Report Type: Spontaneous
  Country: DE (occurrence: DE)
  Receive Date: 20200109
  Receipt Date: 20200109
  Transmission Date: 20200409
  Serious: Yes (Hospitalization)
  Sender: FDA-Public Use
  Company Number: DE-009507513-1912DEU012177

PATIENT
  Age: 56 Year
  Sex: Female
  Weight: 86 kg

DRUGS (9)
  1. MTX HEXAL [Concomitant]
     Active Substance: METHOTREXATE SODIUM
     Indication: PSORIASIS
     Dosage: DAILY DOSE: 7.5 MG MILLGRAM(S) EVERY WEEKS
     Route: 058
  2. L-THYROXIN [Concomitant]
     Active Substance: LEVOTHYROXINE SODIUM
     Indication: HYPOTHYROIDISM
     Dosage: DAILY DOSE: 50 ?G MICROGRAM(S) EVERY DAYS
     Route: 048
  3. HYGROTON [Concomitant]
     Active Substance: CHLORTHALIDONE
     Dosage: 25 MILLIGRAM
     Route: 048
     Dates: start: 20190925, end: 20190926
  4. METFORMIN [Concomitant]
     Active Substance: METFORMIN HYDROCHLORIDE
     Indication: TYPE 2 DIABETES MELLITUS
     Dosage: 3000 MILLIGRAM
     Route: 048
  5. METOPROLOL SUCCINATE. [Concomitant]
     Active Substance: METOPROLOL SUCCINATE
     Indication: HYPERTENSION
     Dosage: 190 MILLIGRAM
     Route: 048
  6. CANDESARTAN. [Concomitant]
     Active Substance: CANDESARTAN
     Indication: HYPERTENSION
     Dosage: 32 MILLIGRAM
     Route: 048
  7. MIRTAZAPINE. [Suspect]
     Active Substance: MIRTAZAPINE
     Indication: DEPRESSION
     Dosage: 15 MILLIGRAM
     Route: 048
  8. LORAZEPAM. [Concomitant]
     Active Substance: LORAZEPAM
     Indication: ANXIETY
     Dosage: BIS 1.5 MG/D
     Route: 048
  9. PAROXAT [Suspect]
     Active Substance: PAROXETINE HYDROCHLORIDE
     Indication: DEPRESSION
     Dosage: 20 MILLIGRAM
     Route: 048
     Dates: start: 20190911, end: 20191029

REACTIONS (7)
  - Hyponatraemia [Recovered/Resolved]
  - Anxiety [Recovered/Resolved]
  - Delusional perception [Recovered/Resolved]
  - Delusion [Recovered/Resolved]
  - Psychomotor hyperactivity [Recovered/Resolved]
  - Confusional state [Recovered/Resolved]
  - Hallucination, auditory [Recovered/Resolved]

NARRATIVE: CASE EVENT DATE: 201909
